FAERS Safety Report 10882866 (Version 2)
Quarter: 2015Q2

REPORT INFORMATION
  Report Type: Spontaneous
  Country: DE (occurrence: DE)
  Receive Date: 20150303
  Receipt Date: 20150413
  Transmission Date: 20150821
  Serious: Yes (Other)
  Sender: FDA-Public Use
  Company Number: GXKR2015DE001179

PATIENT
  Age: 76 Year
  Sex: Female
  Weight: 73 kg

DRUGS (1)
  1. DONEURIN [Suspect]
     Active Substance: DOXEPIN HYDROCHLORIDE
     Indication: SLEEP DISORDER
     Dosage: 50 MG, QD
     Route: 048
     Dates: start: 20150223, end: 20150227

REACTIONS (8)
  - Blood glucose increased [Recovered/Resolved]
  - Neologism [Unknown]
  - Disorientation [Recovered/Resolved]
  - Nervousness [Unknown]
  - Delirium [Recovered/Resolved]
  - Apathy [Unknown]
  - Confusional state [Recovered/Resolved]
  - Coordination abnormal [Recovered/Resolved]

NARRATIVE: CASE EVENT DATE: 20150226
